FAERS Safety Report 11162606 (Version 1)
Quarter: 2015Q2

REPORT INFORMATION
  Report Type: Spontaneous
  Country: US (occurrence: US)
  Receive Date: 20150604
  Receipt Date: 20150604
  Transmission Date: 20150821
  Serious: No
  Sender: FDA-Public Use
  Company Number: US-SA-2014SA177359

PATIENT
  Age: 47 Year
  Sex: Male

DRUGS (3)
  1. SOLOSTAR [Concomitant]
     Active Substance: DEVICE
     Dates: start: 2013
  2. HUMALOG [Concomitant]
     Active Substance: INSULIN LISPRO
     Dosage: 20-30 MG
  3. LANTUS SOLOSTAR [Suspect]
     Active Substance: INSULIN GLARGINE
     Indication: TYPE 2 DIABETES MELLITUS
     Dosage: ON LANTUS FOR YEAR AND A HALF, DOSE: 44 U AT NIGHT DOSE:44 UNIT(S)
     Route: 065
     Dates: start: 2013

REACTIONS (1)
  - Visual impairment [Unknown]
